FAERS Safety Report 10600177 (Version 2)
Quarter: 2014Q4

REPORT INFORMATION
  Report Type: Report from Study
  Country: US (occurrence: US)
  Receive Date: 20141122
  Receipt Date: 20141122
  Transmission Date: 20150529
  Serious: Yes (Hospitalization, Other)
  Sender: FDA-Public Use
  Company Number: US-ABBVIE-14K-163-1304523-00

PATIENT
  Age: 53 Year
  Sex: Male
  Weight: 88.53 kg

DRUGS (4)
  1. HUMIRA [Suspect]
     Active Substance: ADALIMUMAB
     Route: 065
     Dates: start: 201310, end: 201310
  2. METRONIDAZOLE. [Concomitant]
     Active Substance: METRONIDAZOLE
     Indication: PRODUCT USED FOR UNKNOWN INDICATION
  3. HUMIRA [Suspect]
     Active Substance: ADALIMUMAB
     Route: 065
     Dates: start: 201311, end: 201405
  4. HUMIRA [Suspect]
     Active Substance: ADALIMUMAB
     Indication: CROHN^S DISEASE
     Route: 065
     Dates: start: 201310, end: 201310

REACTIONS (6)
  - Drug ineffective [Unknown]
  - Crohn^s disease [Recovered/Resolved]
  - Spleen disorder [Unknown]
  - Inflammatory bowel disease [Recovering/Resolving]
  - Intestinal fistula [Unknown]
  - Renal disorder [Unknown]

NARRATIVE: CASE EVENT DATE: 2014
